FAERS Safety Report 9486496 (Version 1)
Quarter: 2013Q3

REPORT INFORMATION
  Report Type: Spontaneous
  Country: GB (occurrence: None)
  Receive Date: 20130823
  Receipt Date: 20130823
  Transmission Date: 20140515
  Serious: Yes (Death, Hospitalization)
  Sender: FDA-Public Use
  Company Number: AMAG201300134

PATIENT
  Age: 79 Year
  Sex: Male

DRUGS (2)
  1. RIENSO [Suspect]
     Indication: IMAGING PROCEDURE
     Dosage: (285 MG) SINGLE
     Route: 042
     Dates: start: 20130115, end: 20130115
  2. BUSCOPAN (HYOSCINE BUTYLBROMIDE) [Concomitant]

REACTIONS (1)
  - Aortic aneurysm rupture [None]
